FAERS Safety Report 5441199-8 (Version None)
Quarter: 2007Q3

REPORT INFORMATION
  Report Type: 
  Country: None (occurrence: None)
  Receive Date: 20070901
  Receipt Date: 20070821
  Transmission Date: 20080115
  Serious: Yes (Other)
  Sender: FDA-Public Use
  Company Number: US-PFIZER INC-2007070225

PATIENT
  Sex: Female
  Weight: 67.1 kg

DRUGS (10)
  1. LYRICA [Suspect]
     Indication: NEURALGIA
     Dates: start: 20070716, end: 20070716
  2. GABAPENTIN [Suspect]
     Indication: NEURALGIA
     Dates: start: 20070809, end: 20070801
  3. AMOXICILLIN [Suspect]
     Indication: SINUSITIS
  4. PLAVIX [Concomitant]
  5. PLETAL [Concomitant]
  6. HYDROCHLOROTHIAZIDE [Concomitant]
  7. INSULIN [Concomitant]
  8. PREMPRO [Concomitant]
  9. MIRAPEX [Concomitant]
  10. ALL OTHER THERAPEUTIC PRODUCTS [Concomitant]

REACTIONS (2)
  - ACTIVITIES OF DAILY LIVING IMPAIRED [None]
  - SINUSITIS [None]
